FAERS Safety Report 7633724-3 (Version None)
Quarter: 2011Q3

REPORT INFORMATION
  Report Type: 
  Country: None (occurrence: None)
  Receive Date: 20110718
  Receipt Date: 20110707
  Transmission Date: 20111222
  Serious: Yes (Life-Threatening, Hospitalization)
  Sender: FDA-Public Use
  Company Number: 2011SP002283

PATIENT
  Age: 53 Year
  Sex: Female

DRUGS (6)
  1. BLINDED THERAPY [Suspect]
     Indication: HEPATITIS C
     Dosage: QD, ORAL
     Route: 048
     Dates: start: 20101014, end: 20110218
  2. LUNESTA [Suspect]
     Dosage: 2 MG, HS, ORAL
     Route: 048
     Dates: start: 20101205
  3. RIBAVIRIN [Suspect]
     Indication: HEPATITIS C
     Dosage: 1000 MG, QD, ORAL
     Route: 048
     Dates: start: 20110101, end: 20110218
  4. PEGINTERFERON ALFA-2A [Suspect]
     Indication: HEPATITIS C
     Dosage: 90 UG, SUBCUTANEOUS
     Route: 058
     Dates: start: 20101014, end: 20110218
  5. CLONAZEPAM [Suspect]
     Dosage: 0.5 MG, BID, ORAL
     Route: 048
     Dates: start: 20100809
  6. LEXAPRO [Concomitant]

REACTIONS (3)
  - MULTIPLE DRUG OVERDOSE INTENTIONAL [None]
  - SUICIDE ATTEMPT [None]
  - DEPRESSED LEVEL OF CONSCIOUSNESS [None]
